FAERS Safety Report 6640004-1 (Version None)
Quarter: 2010Q1

REPORT INFORMATION
  Report Type: 
  Country: None (occurrence: None)
  Receive Date: 20100318
  Receipt Date: 20100309
  Transmission Date: 20100710
  Serious: Yes (Other)
  Sender: FDA-Public Use
  Company Number: CH-WYE-H14128710

PATIENT
  Age: 79 Year
  Sex: Male

DRUGS (9)
  1. CORDARONE [Suspect]
     Route: 048
     Dates: start: 20100213
  2. REMERON [Interacting]
     Route: 048
     Dates: start: 20100213, end: 20100217
  3. ACCURETIC [Concomitant]
  4. STILNOX [Concomitant]
  5. ADALAT [Concomitant]
  6. ZANTAC [Concomitant]
  7. PROSTA URGENIN UNO [Concomitant]
  8. TRAMADOL HCL [Interacting]
     Route: 048
  9. METFORMIN HYDROCHLORIDE [Concomitant]

REACTIONS (6)
  - AGITATION [None]
  - DRUG INTERACTION [None]
  - MUSCLE RIGIDITY [None]
  - SEROTONIN SYNDROME [None]
  - SOMNOLENCE [None]
  - TREMOR [None]
